FAERS Safety Report 5905000-8 (Version None)
Quarter: 2008Q4

REPORT INFORMATION
  Report Type: 
  Country: None (occurrence: None)
  Receive Date: 20081001
  Receipt Date: 20080919
  Transmission Date: 20090506
  Serious: Yes (Hospitalization)
  Sender: FDA-Public Use
  Company Number: NL-ROCHE-554580

PATIENT

DRUGS (2)
  1. CAPECITABINE [Suspect]
     Route: 065
     Dates: start: 20080305, end: 20080422
  2. NEXIUM [Concomitant]

REACTIONS (3)
  - BRONCHITIS [None]
  - ILL-DEFINED DISORDER [None]
  - PYREXIA [None]
